FAERS Safety Report 18198203 (Version 1)
Quarter: 2020Q3

REPORT INFORMATION
  Report Type: Spontaneous
  Country: AT (occurrence: AT)
  Receive Date: 20200826
  Receipt Date: 20200826
  Transmission Date: 20201103
  Serious: Yes (Hospitalization, Other)
  Sender: FDA-Public Use
  Company Number: AT-MYLANLABS-2020M1073337

PATIENT
  Age: 77 Year
  Sex: Female
  Weight: 87 kg

DRUGS (7)
  1. PREGABALIN. [Suspect]
     Active Substance: PREGABALIN
     Indication: PRODUCT USED FOR UNKNOWN INDICATION
     Dosage: UNK
  2. FUROSEMIDE. [Concomitant]
     Active Substance: FUROSEMIDE
     Dosage: UNK
  3. DILATREND [Concomitant]
     Active Substance: CARVEDILOL
     Dosage: UNK
  4. DIGITOXIN [Concomitant]
     Active Substance: DIGITOXIN
     Dosage: UNK
  5. INSULIN GLARGINE [Concomitant]
     Active Substance: INSULIN GLARGINE
     Indication: DIABETES MELLITUS
     Dosage: UNK
  6. NOAK [Concomitant]
     Active Substance: ACECLOFENAC
     Dosage: UNK
  7. HYDROMORPHONE [Concomitant]
     Active Substance: HYDROMORPHONE
     Dosage: UNK

REACTIONS (4)
  - Blood creatinine increased [Unknown]
  - Weight decreased [Unknown]
  - Gangrene [Recovering/Resolving]
  - Iron deficiency anaemia [Unknown]

NARRATIVE: CASE EVENT DATE: 2019
